FAERS Safety Report 4638873-X (Version None)
Quarter: 2005Q2

REPORT INFORMATION
  Report Type: 
  Country: None (occurrence: None)
  Receive Date: 20050418
  Receipt Date: 20050418
  Transmission Date: 20051028
  Serious: Yes (Life-Threatening, Hospitalization)
  Sender: FDA-Public Use
  Company Number: None

PATIENT
  Age: 70 Year
  Sex: Male
  Weight: 90.7194 kg

DRUGS (2)
  1. LESCOL XL [Suspect]
     Indication: DYSLIPIDAEMIA
     Dosage: QD
     Dates: start: 20050101, end: 20050417
  2. COUMADIN [Suspect]
     Dosage: QD
     Dates: start: 20050405, end: 20050410

REACTIONS (1)
  - HAEMORRHAGE [None]
